FAERS Safety Report 12976173 (Version 2)
Quarter: 2017Q2

REPORT INFORMATION
  Report Type: Report from Study
  Country: None (occurrence: US)
  Receive Date: 20161126
  Receipt Date: 20170428
  Transmission Date: 20170830
  Serious: Yes (Other)
  Sender: FDA-Public Use
  Company Number: US-ABBVIE-16K-163-1786639-00

PATIENT
  Age: 52 Year
  Sex: Female

DRUGS (2)
  1. HUMIRA [Suspect]
     Active Substance: ADALIMUMAB
     Indication: HIDRADENITIS
     Route: 058
  2. LIPITOR [Suspect]
     Active Substance: ATORVASTATIN CALCIUM
     Indication: PRODUCT USED FOR UNKNOWN INDICATION
     Route: 065

REACTIONS (7)
  - Paranasal sinus hypersecretion [Not Recovered/Not Resolved]
  - Cough [Not Recovered/Not Resolved]
  - Sinusitis [Not Recovered/Not Resolved]
  - Hidradenitis [Recovering/Resolving]
  - Skin infection [Not Recovered/Not Resolved]
  - Depression suicidal [Recovering/Resolving]
  - Rhinorrhoea [Not Recovered/Not Resolved]

NARRATIVE: CASE EVENT DATE: 201610
